FAERS Safety Report 9784664 (Version 2)
Quarter: 2013Q4

REPORT INFORMATION
  Report Type: Spontaneous
  Country: GB (occurrence: GB)
  Receive Date: 20131226
  Receipt Date: 20131226
  Transmission Date: 20140711
  Serious: Yes (Hospitalization)
  Sender: FDA-Public Use
  Company Number: GB-B.I. PHARMACEUTICALS,INC./RIDGEFIELD-2013-BI-41035UK

PATIENT
  Sex: 0

DRUGS (1)
  1. MIRAPEXIN [Suspect]

REACTIONS (3)
  - Ill-defined disorder [Unknown]
  - Overdose [Unknown]
  - Product label issue [Unknown]
